FAERS Safety Report 6963921-1 (Version None)
Quarter: 2010Q3

REPORT INFORMATION
  Report Type: 
  Country: None (occurrence: None)
  Receive Date: 20100831
  Receipt Date: 20100820
  Transmission Date: 20110219
  Serious: Yes (Life-Threatening)
  Sender: FDA-Public Use
  Company Number: AR-GDP-10408819

PATIENT
  Age: 16 Year
  Sex: Female

DRUGS (2)
  1. EPIDUO [Suspect]
     Indication: ACNE
     Dosage: (TOPICAL)
     Route: 061
     Dates: start: 20100813, end: 20100815
  2. ORAL CONTRACEPTIVE NOS [Concomitant]

REACTIONS (3)
  - NO THERAPEUTIC RESPONSE [None]
  - PHARYNGEAL OEDEMA [None]
  - SWELLING FACE [None]
